FAERS Safety Report 23160975 (Version 1)
Quarter: 2023Q4

REPORT INFORMATION
  Report Type: Report from Study
  Country: CA (occurrence: CA)
  Receive Date: 20231108
  Receipt Date: 20231108
  Transmission Date: 20240110
  Serious: Yes (Hospitalization)
  Sender: FDA-Public Use
  Company Number: CA-VER-202300460

PATIENT
  Age: 73 Year
  Sex: Male

DRUGS (2)
  1. TRIPTORELIN PAMOATE [Suspect]
     Active Substance: TRIPTORELIN PAMOATE
     Dosage: (3 M)
     Route: 030
     Dates: start: 20230124, end: 20230124
  2. TRIPTORELIN PAMOATE [Suspect]
     Active Substance: TRIPTORELIN PAMOATE
     Dosage: (3 M)
     Route: 030
     Dates: start: 20230710, end: 20230710

REACTIONS (2)
  - Cardiac disorder [Unknown]
  - Inappropriate schedule of product administration [Unknown]
